FAERS Safety Report 14091752 (Version 3)
Quarter: 2018Q4

REPORT INFORMATION
  Report Type: Spontaneous
  Country: US (occurrence: US)
  Receive Date: 20171016
  Receipt Date: 20181212
  Transmission Date: 20190204
  Serious: No
  Sender: FDA-Public Use
  Company Number: US-PFIZER INC-2017440290

PATIENT
  Age: 64 Year
  Sex: Female
  Weight: 86 kg

DRUGS (7)
  1. MONOPRIL [Concomitant]
     Active Substance: FOSINOPRIL SODIUM
     Indication: HYPERTENSION
     Dosage: 20 MG, 1X/DAY
     Route: 048
  2. VALIUM [Concomitant]
     Active Substance: DIAZEPAM
     Indication: ANXIETY
     Dosage: 20 MG, DAILY
     Route: 048
  3. FOSINOPRIL [Concomitant]
     Active Substance: FOSINOPRIL
     Indication: HYPERTENSION
     Dosage: 20 MG, 1X/DAY
  4. ATORVASTATIN CALCIUM. [Suspect]
     Active Substance: ATORVASTATIN CALCIUM
     Indication: BLOOD CHOLESTEROL INCREASED
     Dosage: 80 MG, 1X/DAY
     Route: 048
  5. LEXAPRO [Concomitant]
     Active Substance: ESCITALOPRAM OXALATE
     Indication: DEPRESSION
     Dosage: 20 MG, DAILY
     Route: 048
  6. ZETIA [Concomitant]
     Active Substance: EZETIMIBE
     Indication: BLOOD CHOLESTEROL INCREASED
     Dosage: 10 MG, DAILY
     Route: 048
  7. SYNTHROID [Concomitant]
     Active Substance: LEVOTHYROXINE SODIUM
     Indication: HYPOTHYROIDISM
     Dosage: 0.112 MG, 1X/DAY
     Route: 048

REACTIONS (10)
  - Constipation [Unknown]
  - Drug intolerance [Unknown]
  - Gastric disorder [Recovered/Resolved]
  - Nervousness [Recovered/Resolved]
  - Tremor [Recovered/Resolved]
  - Malaise [Unknown]
  - Polyp [Unknown]
  - Irritable bowel syndrome [Unknown]
  - Condition aggravated [Recovered/Resolved]
  - Diverticulum [Unknown]
